FAERS Safety Report 13461198 (Version 2)
Quarter: 2017Q2

REPORT INFORMATION
  Report Type: Spontaneous
  Country: US (occurrence: US)
  Receive Date: 20170420
  Receipt Date: 20170421
  Transmission Date: 20170830
  Serious: Yes (Other)
  Sender: FDA-Public Use
  Company Number: US-TEVA-761329USA

PATIENT
  Sex: Male

DRUGS (2)
  1. ACTIQ [Suspect]
     Active Substance: FENTANYL CITRATE
     Indication: BREAKTHROUGH PAIN
     Route: 065
  2. FENTORA [Suspect]
     Active Substance: FENTANYL CITRATE
     Indication: BREAKTHROUGH PAIN
     Route: 065

REACTIONS (3)
  - Surgery [Recovered/Resolved]
  - Drug intolerance [Not Recovered/Not Resolved]
  - Drug effect decreased [Not Recovered/Not Resolved]
